FAERS Safety Report 25701159 (Version 1)
Quarter: 2025Q3

REPORT INFORMATION
  Report Type: Spontaneous
  Country: JO (occurrence: JO)
  Receive Date: 20250819
  Receipt Date: 20250819
  Transmission Date: 20251020
  Serious: Yes (Other)
  Sender: SLATE RUN
  Company Number: JO-SLATERUN-2025SRLIT00154

PATIENT
  Age: 16 Year
  Sex: Male

DRUGS (17)
  1. MYCOPHENOLIC ACID [Suspect]
     Active Substance: MYCOPHENOLIC ACID
     Indication: Graft versus host disease
     Route: 065
     Dates: start: 2023
  2. CYCLOPHOSPHAMIDE [Suspect]
     Active Substance: CYCLOPHOSPHAMIDE
     Indication: Graft versus host disease
     Route: 065
     Dates: start: 2023
  3. CYCLOPHOSPHAMIDE [Suspect]
     Active Substance: CYCLOPHOSPHAMIDE
     Route: 065
     Dates: start: 2023
  4. MESNA [Suspect]
     Active Substance: MESNA
     Indication: Graft versus host disease
     Route: 065
     Dates: start: 2023
  5. TACROLIMUS [Suspect]
     Active Substance: TACROLIMUS
     Indication: Graft versus host disease
     Route: 065
     Dates: start: 2023
  6. VINCRISTINE [Concomitant]
     Active Substance: VINCRISTINE
     Indication: B precursor type acute leukaemia
     Route: 065
  7. DAUNORUBICIN [Concomitant]
     Active Substance: DAUNORUBICIN
     Indication: B precursor type acute leukaemia
     Route: 065
  8. PREDNISOLONE [Concomitant]
     Active Substance: PREDNISOLONE
     Indication: B precursor type acute leukaemia
     Route: 065
  9. PEG/L-ASPARAGINASE [Concomitant]
     Active Substance: PEGASPARGASE
     Indication: B precursor type acute leukaemia
     Route: 065
  10. METHOTREXATE [Concomitant]
     Active Substance: METHOTREXATE
     Indication: B precursor type acute leukaemia
     Route: 065
  11. MERCAPTOPURINE [Concomitant]
     Active Substance: MERCAPTOPURINE
     Indication: B precursor type acute leukaemia
     Route: 065
  12. CYTARABINE [Concomitant]
     Active Substance: CYTARABINE
     Indication: B precursor type acute leukaemia
     Route: 065
  13. CYTARABINE [Concomitant]
     Active Substance: CYTARABINE
     Route: 065
  14. DEXAMETHASONE [Concomitant]
     Active Substance: DEXAMETHASONE
     Indication: B precursor type acute leukaemia
     Route: 065
  15. FLUDARABINE [Concomitant]
     Active Substance: FLUDARABINE PHOSPHATE
     Indication: Chemotherapy
     Route: 065
  16. FLUDARABINE [Concomitant]
     Active Substance: FLUDARABINE PHOSPHATE
     Indication: Chemotherapy
     Route: 065
  17. THYMOCYTE IMMUNE GLOBULIN NOS [Concomitant]
     Active Substance: THYMOCYTE IMMUNE GLOBULIN NOS
     Route: 065

REACTIONS (4)
  - Febrile neutropenia [Recovering/Resolving]
  - Cytomegalovirus infection reactivation [Unknown]
  - Mucosal inflammation [Unknown]
  - Cystitis viral [Unknown]

NARRATIVE: CASE EVENT DATE: 20230101
